FAERS Safety Report 18124346 (Version 4)
Quarter: 2020Q4

REPORT INFORMATION
  Report Type: Report from Study
  Country: None (occurrence: GB)
  Receive Date: 20200807
  Receipt Date: 20201006
  Transmission Date: 20210113
  Serious: Yes (Other)
  Sender: FDA-Public Use
  Company Number: GB-MDD US OPERATIONS-MDD202008-001572

PATIENT
  Age: 60 Year
  Sex: Female

DRUGS (9)
  1. LAXIDO [Concomitant]
     Active Substance: POLYETHYLENE GLYCOL 3350\POTASSIUM CHLORIDE\SODIUM BICARBONATE\SODIUM CHLORIDE
     Dosage: NOT PROVIDED
  2. CO-BENELDOPA [Concomitant]
     Active Substance: BENSERAZIDE HYDROCHLORIDE\LEVODOPA
  3. ZOPICLONE [Concomitant]
     Active Substance: ZOPICLONE
     Dosage: NOT PROVIDED
  4. CO-BENELDOPA [Concomitant]
     Active Substance: BENSERAZIDE HYDROCHLORIDE\LEVODOPA
     Indication: PARKINSON^S DISEASE
  5. CITALOPRAM [Concomitant]
     Active Substance: CITALOPRAM HYDROBROMIDE
  6. OMEPRAZOLE. [Concomitant]
     Active Substance: OMEPRAZOLE
  7. PREGABALIN. [Concomitant]
     Active Substance: PREGABALIN
  8. APOMORPHINE HYDROCHLORIDE [Suspect]
     Active Substance: APOMORPHINE HYDROCHLORIDE
     Indication: PARKINSON^S DISEASE
     Route: 058
     Dates: start: 20200706
  9. ROTIGOTINE [Concomitant]
     Active Substance: ROTIGOTINE
     Indication: PARKINSON^S DISEASE

REACTIONS (1)
  - Infusion site necrosis [Recovered/Resolved]

NARRATIVE: CASE EVENT DATE: 202007
